FAERS Safety Report 24401292 (Version 1)
Quarter: 2024Q4

REPORT INFORMATION
  Report Type: Report from Study
  Country: IL (occurrence: IL)
  Receive Date: 20241007
  Receipt Date: 20241007
  Transmission Date: 20250115
  Serious: Yes (Other)
  Sender: ABBVIE
  Company Number: IL-ABBVIE-4144424

PATIENT
  Age: 74 Year
  Sex: Male
  Weight: 91 kg

DRUGS (22)
  1. VENETOCLAX [Suspect]
     Active Substance: VENETOCLAX
     Indication: Chronic lymphocytic leukaemia
     Route: 048
     Dates: start: 20220203, end: 20220508
  2. VENETOCLAX [Suspect]
     Active Substance: VENETOCLAX
     Indication: Chronic lymphocytic leukaemia
     Route: 048
     Dates: start: 20211118, end: 20211124
  3. VENETOCLAX [Suspect]
     Active Substance: VENETOCLAX
     Indication: Chronic lymphocytic leukaemia
     Route: 048
     Dates: start: 20211202, end: 20211208
  4. VENETOCLAX [Suspect]
     Active Substance: VENETOCLAX
     Indication: Chronic lymphocytic leukaemia
     Route: 048
     Dates: start: 20211216, end: 20220103
  5. VENETOCLAX [Suspect]
     Active Substance: VENETOCLAX
     Indication: Chronic lymphocytic leukaemia
     Route: 048
     Dates: start: 20211209, end: 20211215
  6. VENETOCLAX [Suspect]
     Active Substance: VENETOCLAX
     Indication: Chronic lymphocytic leukaemia
     Route: 048
     Dates: start: 20211125, end: 20211201
  7. VENETOCLAX [Suspect]
     Active Substance: VENETOCLAX
     Indication: Chronic lymphocytic leukaemia
     Route: 048
     Dates: start: 20220113, end: 20220202
  8. PREDNISONE [Concomitant]
     Active Substance: PREDNISONE
     Indication: Infection
     Dates: start: 20220310
  9. OBINUTUZUMAB [Suspect]
     Active Substance: OBINUTUZUMAB
     Indication: CD20 antigen positive
     Route: 065
     Dates: start: 20211102, end: 20211102
  10. OBINUTUZUMAB [Suspect]
     Active Substance: OBINUTUZUMAB
     Indication: CD20 antigen positive
     Route: 065
     Dates: start: 20211223, end: 20211223
  11. OBINUTUZUMAB [Suspect]
     Active Substance: OBINUTUZUMAB
     Indication: CD20 antigen positive
     Route: 065
     Dates: start: 20211109, end: 20211109
  12. OBINUTUZUMAB [Suspect]
     Active Substance: OBINUTUZUMAB
     Indication: CD20 antigen positive
     Route: 065
     Dates: start: 20220310, end: 20220310
  13. OBINUTUZUMAB [Suspect]
     Active Substance: OBINUTUZUMAB
     Indication: CD20 antigen positive
     Route: 065
     Dates: start: 20211125, end: 20211125
  14. OBINUTUZUMAB [Suspect]
     Active Substance: OBINUTUZUMAB
     Indication: CD20 antigen positive
     Route: 065
     Dates: start: 20220508, end: 20220508
  15. OBINUTUZUMAB [Suspect]
     Active Substance: OBINUTUZUMAB
     Indication: CD20 antigen positive
     Route: 065
     Dates: start: 20220404, end: 20220404
  16. LORATADINE [Concomitant]
     Active Substance: LORATADINE
     Indication: Premedication
     Dates: start: 20211026
  17. Abrol [Concomitant]
     Indication: Premedication
     Dates: start: 20211026
  18. CYCLOSPORINE [Concomitant]
     Active Substance: CYCLOSPORINE
     Indication: Chronic lymphocytic leukaemia
     Dates: start: 20220329
  19. EVUSHELD [Concomitant]
     Active Substance: CILGAVIMAB\TIXAGEVIMAB
     Indication: COVID-19 prophylaxis
     Dates: start: 20220223, end: 20220223
  20. CIALIS [Concomitant]
     Active Substance: TADALAFIL
     Indication: Pulmonary arterial hypertension
  21. Immunoglobulin [Concomitant]
     Indication: Prophylaxis
     Dosage: INTRAVENOUS IMMUNOGLOBULIN
     Route: 042
     Dates: start: 20220310
  22. OMEPRAZOLE [Concomitant]
     Active Substance: OMEPRAZOLE
     Indication: Gastrointestinal disorder
     Dates: start: 20220313, end: 20220320

REACTIONS (7)
  - Aplasia pure red cell [Not Recovered/Not Resolved]
  - Anaemia [Recovered/Resolved]
  - Neutropenia [Recovered/Resolved]
  - Leukopenia [Not Recovered/Not Resolved]
  - Leukopenia [Not Recovered/Not Resolved]
  - Neutropenia [Recovered/Resolved]
  - Fatigue [Not Recovered/Not Resolved]

NARRATIVE: CASE EVENT DATE: 20211223
